FAERS Safety Report 21739239 (Version 1)
Quarter: 2022Q4

REPORT INFORMATION
  Report Type: Report from Study
  Country: ES (occurrence: ES)
  Receive Date: 20221216
  Receipt Date: 20221216
  Transmission Date: 20230113
  Serious: Yes (Death)
  Sender: FDA-Public Use
  Company Number: ES-ABBVIE-4197757

PATIENT
  Age: 82 Year
  Sex: Female
  Weight: 64 kg

DRUGS (17)
  1. CARBIDOPA\LEVODOPA [Suspect]
     Active Substance: CARBIDOPA\LEVODOPA
     Indication: Parkinson^s disease
     Route: 050
     Dates: start: 20190502, end: 202211
  2. CARBIDOPA\LEVODOPA [Suspect]
     Active Substance: CARBIDOPA\LEVODOPA
     Dosage: MORNING DOSE IS DECREASED BY 1 ML START DATE 2022
     Route: 050
     Dates: start: 2022, end: 202211
  3. CARBIDOPA\LEVODOPA [Suspect]
     Active Substance: CARBIDOPA\LEVODOPA
     Dosage: LOWERED THE CONTINUOUS DOSE TO 4.3ML/H
     Route: 050
     Dates: start: 202211, end: 202211
  4. CARBIDOPA\LEVODOPA [Suspect]
     Active Substance: CARBIDOPA\LEVODOPA
     Dosage: LOWERED THE CONTINUOUS DOSE TO 4.3ML/H
     Route: 050
     Dates: start: 202211
  5. Covid 19 Vaccine [Concomitant]
     Indication: COVID-19 prophylaxis
     Route: 030
     Dates: start: 20221110, end: 20221110
  6. Covid 19 Vaccine [Concomitant]
     Indication: COVID-19 prophylaxis
     Route: 030
     Dates: start: 20221110, end: 20221110
  7. Covid 19 Vaccine [Concomitant]
     Indication: COVID-19 prophylaxis
     Route: 030
     Dates: start: 20221110, end: 20221110
  8. Covid 19 Vaccine [Concomitant]
     Indication: COVID-19 prophylaxis
     Route: 030
     Dates: start: 20221110, end: 20221110
  9. Covid 19 Vaccine [Concomitant]
     Indication: COVID-19 prophylaxis
     Route: 030
     Dates: start: 20221110, end: 20221110
  10. MEMANTINE HYDROCHLORIDE [Concomitant]
     Active Substance: MEMANTINE HYDROCHLORIDE
     Indication: Product used for unknown indication
     Route: 048
     Dates: start: 20221123
  11. MEMANTINE HYDROCHLORIDE [Concomitant]
     Active Substance: MEMANTINE HYDROCHLORIDE
     Indication: Product used for unknown indication
     Route: 048
  12. MEMANTINE HYDROCHLORIDE [Concomitant]
     Active Substance: MEMANTINE HYDROCHLORIDE
     Indication: Product used for unknown indication
     Route: 048
  13. MEMANTINE HYDROCHLORIDE [Concomitant]
     Active Substance: MEMANTINE HYDROCHLORIDE
     Indication: Product used for unknown indication
     Route: 048
     Dates: start: 20221123
  14. MEMANTINE HYDROCHLORIDE [Concomitant]
     Active Substance: MEMANTINE HYDROCHLORIDE
     Indication: Product used for unknown indication
     Route: 048
  15. MEMANTINE HYDROCHLORIDE [Concomitant]
     Active Substance: MEMANTINE HYDROCHLORIDE
     Indication: Product used for unknown indication
     Route: 048
     Dates: start: 20221123
  16. MEMANTINE HYDROCHLORIDE [Concomitant]
     Active Substance: MEMANTINE HYDROCHLORIDE
     Indication: Product used for unknown indication
     Route: 048
  17. MEMANTINE HYDROCHLORIDE [Concomitant]
     Active Substance: MEMANTINE HYDROCHLORIDE
     Indication: Product used for unknown indication
     Route: 048
     Dates: start: 20221123

REACTIONS (13)
  - Dysphagia [Fatal]
  - Depressed mood [Unknown]
  - Condition aggravated [Unknown]
  - Disorientation [Not Recovered/Not Resolved]
  - Dyskinesia [Recovered/Resolved]
  - Apathy [Unknown]
  - Somnolence [Unknown]
  - Dyskinesia [Unknown]
  - Hypophagia [Fatal]
  - Somnolence [Not Recovered/Not Resolved]
  - Weight decreased [Unknown]
  - Cognitive disorder [Not Recovered/Not Resolved]
  - Productive cough [Fatal]

NARRATIVE: CASE EVENT DATE: 20221101
